FAERS Safety Report 8517083-X (Version None)
Quarter: 2012Q3

REPORT INFORMATION
  Report Type: 
  Country: None (occurrence: None)
  Receive Date: 20120718
  Receipt Date: 20120706
  Transmission Date: 20120928
  Serious: Yes (Life-Threatening)
  Sender: FDA-Public Use
  Company Number: FR-BRISTOL-MYERS SQUIBB COMPANY-16752529

PATIENT
  Age: 80 Year
  Sex: Male
  Weight: 85 kg

DRUGS (7)
  1. ATORVASTATIN [Suspect]
     Route: 048
     Dates: start: 20050101, end: 20120608
  2. PANTOPRAZOLE [Concomitant]
     Dosage: LONG TERM TREATMENT
  3. BISOPROLOL FUMARATE [Suspect]
     Route: 048
     Dates: start: 19920101, end: 20120607
  4. CIPRALAN [Concomitant]
     Dates: start: 19920101, end: 20120501
  5. ASPIRIN [Concomitant]
     Dosage: POWDER FOR ORAL SOLUTION
     Route: 048
  6. IRBESARTAN [Suspect]
     Route: 048
     Dates: start: 20060101, end: 20120607
  7. PROCORALAN [Concomitant]
     Route: 048
     Dates: start: 20120515

REACTIONS (1)
  - INTERSTITIAL LUNG DISEASE [None]
